FAERS Safety Report 16847287 (Version 1)
Quarter: 2019Q3

REPORT INFORMATION
  Report Type: Report from Study
  Country: CA (occurrence: CA)
  Receive Date: 20190924
  Receipt Date: 20190924
  Transmission Date: 20191005
  Serious: Yes (Other)
  Sender: FDA-Public Use
  Company Number: PHHY2019CA218339

PATIENT
  Age: 35 Year
  Sex: Female

DRUGS (1)
  1. METHOTREXATE. [Suspect]
     Active Substance: METHOTREXATE
     Indication: PRODUCT USED FOR UNKNOWN INDICATION
     Dosage: 25 MG, QW
     Route: 058

REACTIONS (13)
  - Arthralgia [Unknown]
  - Tremor [Unknown]
  - Respiratory rate increased [Unknown]
  - Musculoskeletal pain [Unknown]
  - Ligament pain [Unknown]
  - Musculoskeletal stiffness [Unknown]
  - Constipation [Unknown]
  - Back pain [Unknown]
  - Psoriatic arthropathy [Unknown]
  - Colitis [Unknown]
  - Diarrhoea [Unknown]
  - Pain in extremity [Unknown]
  - Spondyloarthropathy [Unknown]

NARRATIVE: CASE EVENT DATE: 20190328
